FAERS Safety Report 13721492 (Version 3)
Quarter: 2017Q3

REPORT INFORMATION
  Report Type: Spontaneous
  Country: US (occurrence: US)
  Receive Date: 20170706
  Receipt Date: 20170810
  Transmission Date: 20171127
  Serious: Yes (Hospitalization)
  Sender: FDA-Public Use
  Company Number: US-LPDUSPRD-20170792

PATIENT
  Age: 44 Year
  Sex: Male
  Weight: 142.9 kg

DRUGS (22)
  1. GLYCERYL TRINITRATE [Concomitant]
     Active Substance: NITROGLYCERIN
     Dosage: 10 GM
     Route: 060
  2. AMLODIPINE BESILATE [Concomitant]
     Active Substance: AMLODIPINE BESYLATE
     Dosage: 5 MG ONE TIME A DAY
     Route: 048
  3. INSULIN LISPRO [Concomitant]
     Active Substance: INSULIN LISPRO
     Dosage: UNKNOWN
     Route: 058
  4. INSULIN DETEMIR [Concomitant]
     Active Substance: INSULIN DETEMIR
     Dosage: 80 IU, NIGHTLY
     Route: 058
  5. METOPROLOL SUCCINATE. [Concomitant]
     Active Substance: METOPROLOL SUCCINATE
     Dosage: 150 MG
     Route: 048
  6. LISINOPRIL. [Concomitant]
     Active Substance: LISINOPRIL
     Dosage: 10 MG 1 TIME A DAY
     Route: 048
  7. SODIUM POLYSTYRENE SULFONATE. [Concomitant]
     Active Substance: SODIUM POLYSTYRENE SULFONATE
     Dosage: 60 ML ON SUNDAYS
     Route: 048
  8. VENOFER [Suspect]
     Active Substance: IRON SUCROSE
     Dosage: ONE UNSPECIFIED DOSE
     Route: 042
  9. ACETYLSALICYLIC ACID [Concomitant]
     Active Substance: ASPIRIN
     Route: 065
  10. CALCITRIOL. [Concomitant]
     Active Substance: CALCITRIOL
     Dosage: 30 MG
     Route: 048
  11. ROSUVASTATIN CALCIUM. [Concomitant]
     Active Substance: ROSUVASTATIN CALCIUM
     Dosage: 20 MG
     Route: 048
  12. ISOSORBIDE MONONITRATE. [Concomitant]
     Active Substance: ISOSORBIDE MONONITRATE
     Route: 065
  13. FUROSEMIDE. [Concomitant]
     Active Substance: FUROSEMIDE
     Dosage: 80 MG TWICE DAILY
     Route: 048
  14. EPOETIN ALFA [Concomitant]
     Active Substance: ERYTHROPOIETIN
     Dosage: 3000 IU 1 IN 4 WEEK
     Route: 065
  15. INSULIN ASPART [Concomitant]
     Active Substance: INSULIN ASPART
     Dosage: 14 IU BEFORE MEALS
  16. SODIUM POLYSTRENE SULFONATE [Concomitant]
     Dosage: 15 GM
     Route: 048
  17. SODIUM BICARBONATE. [Concomitant]
     Active Substance: SODIUM BICARBONATE
     Dosage: 10 GM, 3 IN 1 DAY
     Route: 048
  18. GLYCERYL TRINITRATE [Concomitant]
     Active Substance: NITROGLYCERIN
     Dosage: 1 TABLET AS NEEDED
     Route: 060
  19. CEFAZOLIN [Concomitant]
     Active Substance: CEFAZOLIN
     Dosage: UNKNOWN
     Route: 042
  20. OMEGA-3-ACID ETHYL ESTER [Concomitant]
     Active Substance: OMEGA-3-ACID ETHYL ESTERS
     Dosage: ORAL
     Route: 048
  21. INSULIN GLARGINE [Concomitant]
     Active Substance: INSULIN GLARGINE
     Route: 065
  22. TRIAMINOLONE [Concomitant]
     Dosage: 1 GM

REACTIONS (12)
  - Anaemia [Unknown]
  - Skin ulcer [Unknown]
  - Fatigue [Unknown]
  - Impaired gastric emptying [Unknown]
  - Malaise [Unknown]
  - Drug ineffective [Unknown]
  - Pyomyositis [Unknown]
  - Pain in extremity [Unknown]
  - Peripheral swelling [Unknown]
  - Aplasia pure red cell [Unknown]
  - Pyrexia [Unknown]
  - Chills [Unknown]
